FAERS Safety Report 6174129-4 (Version None)
Quarter: 2009Q2

REPORT INFORMATION
  Report Type: 
  Country: None (occurrence: None)
  Receive Date: 20090430
  Receipt Date: 20090428
  Transmission Date: 20091009
  Serious: Yes (Other)
  Sender: FDA-Public Use
  Company Number: DE-BRISTOL-MYERS SQUIBB COMPANY-14604789

PATIENT
  Age: 47 Year
  Sex: Female

DRUGS (3)
  1. BESPAR [Suspect]
     Route: 048
  2. PAROXETINE HCL [Suspect]
     Dosage: 1DF= 20 UNITS NOT SPECIFIED.
     Route: 048
  3. TRUXAL [Suspect]
     Dosage: 1 DF = 90 TABS, TRUXAL 15.
     Route: 048

REACTIONS (4)
  - OVERDOSE [None]
  - SOMNOLENCE [None]
  - SUICIDE ATTEMPT [None]
  - TACHYCARDIA [None]
